FAERS Safety Report 5357070-6 (Version None)
Quarter: 2007Q2

REPORT INFORMATION
  Report Type: 
  Country: None (occurrence: None)
  Receive Date: 20070612
  Receipt Date: 20070612
  Transmission Date: 20071010
  Serious: Yes (Disabling)
  Sender: FDA-Public Use
  Company Number: None

PATIENT
  Age: 47 Year
  Sex: Female
  Weight: 63.5036 kg

DRUGS (2)
  1. PEGASYS [Suspect]
     Indication: HEPATITIS C
     Dosage: 180MG/0.5ML WEEKLY SQ
     Route: 058
     Dates: start: 20061125, end: 20070211
  2. COPEGUS [Suspect]
     Dosage: 5 TABLETS DAILY PO
     Route: 048
     Dates: start: 20061125, end: 20070213

REACTIONS (5)
  - ACTIVITIES OF DAILY LIVING IMPAIRED [None]
  - AUTOIMMUNE THYROIDITIS [None]
  - CHRONIC INFLAMMATORY DEMYELINATING POLYRADICULONEUROPATHY [None]
  - FALL [None]
  - NEUROPATHY PERIPHERAL [None]
